FAERS Safety Report 9360843 (Version 2)
Quarter: 2013Q3

REPORT INFORMATION
  Report Type: Spontaneous
  Country: FR (occurrence: None)
  Receive Date: 20130618
  Receipt Date: 20130702
  Transmission Date: 20140515
  Serious: Yes (Death, Other)
  Sender: FDA-Public Use
  Company Number: AUR-APL-2013-04956

PATIENT
  Age: 75 Year
  Sex: Male

DRUGS (7)
  1. SIMVASTATIN (SIMVASTATIN) [Suspect]
     Indication: PRODUCT USED FOR UNKNOWN INDICATION
     Route: 048
  2. CORDARONE [Suspect]
     Indication: ATRIAL FIBRILLATION
     Route: 048
  3. KARDEGIC [Suspect]
     Indication: PRODUCT USED FOR UNKNOWN INDICATION
     Route: 048
  4. PREVISCAN [Suspect]
     Indication: ATRIAL FIBRILLATION
     Route: 048
  5. MISCARDIS PLUS (PRITORPLUS) [Concomitant]
  6. NEBILOX (NEBIVOLOL HYDROCHLORIDE) [Concomitant]
  7. RILMENIDINE (RILMENIDINE) [Concomitant]

REACTIONS (10)
  - Subdural haematoma [None]
  - Loss of consciousness [None]
  - Headache [None]
  - Left ventricular failure [None]
  - Sepsis [None]
  - Respiratory disorder [None]
  - Confusional state [None]
  - Amnesia [None]
  - Mydriasis [None]
  - Intracranial pressure increased [None]
